FAERS Safety Report 9412657 (Version 2)
Quarter: 2013Q3

REPORT INFORMATION
  Report Type: Spontaneous
  Country: JP (occurrence: JP)
  Receive Date: 20130722
  Receipt Date: 20130919
  Transmission Date: 20140515
  Serious: Yes (Hospitalization)
  Sender: FDA-Public Use
  Company Number: JP-SANOFI-AVENTIS-2013SA071857

PATIENT
  Age: 53 Year
  Sex: Female

DRUGS (4)
  1. ONETAXOTERE [Suspect]
     Indication: BREAST CANCER
     Route: 042
     Dates: start: 20130708, end: 20130708
  2. ENDOXAN [Suspect]
     Indication: BREAST CANCER
     Route: 065
     Dates: start: 20130708, end: 20130708
  3. TRYPTANOL /AUS/ [Concomitant]
     Indication: DEPRESSION
     Dosage: UNKNOWN DOSE, PRN
     Route: 048
  4. SOLANAX [Concomitant]
     Indication: DEPRESSION
     Dosage: UNKNOWN, PRN
     Route: 048

REACTIONS (3)
  - Hyponatraemia [Recovered/Resolved]
  - Hyperventilation [Recovered/Resolved]
  - Dysuria [Recovered/Resolved]
